FAERS Safety Report 5339055-9 (Version None)
Quarter: 2007Q2

REPORT INFORMATION
  Report Type: 
  Country: None (occurrence: None)
  Receive Date: 20070330
  Receipt Date: 20061129
  Transmission Date: 20071010
  Serious: No
  Sender: FDA-Public Use
  Company Number: 2006UW26566

PATIENT
  Age: 59 Year
  Sex: Male

DRUGS (3)
  1. LISINOPRIL [Suspect]
  2. NORVASC [Suspect]
  3. LABETALOL HCL [Suspect]

REACTIONS (1)
  - CEREBROVASCULAR ACCIDENT [None]
